FAERS Safety Report 9714605 (Version 2)
Quarter: 2013Q4

REPORT INFORMATION
  Report Type: Spontaneous
  Country: GB (occurrence: None)
  Receive Date: 20131125
  Receipt Date: 20131206
  Transmission Date: 20140711
  Serious: Yes (Other)
  Sender: FDA-Public Use
  Company Number: 1283924

PATIENT
  Age: 55 Year
  Sex: Female

DRUGS (2)
  1. TAMOXIFEN [Suspect]
     Indication: HER-2 POSITIVE BREAST CANCER
  2. HERCEPTIN [Concomitant]

REACTIONS (10)
  - Immunodeficiency [None]
  - Premature menopause [None]
  - Alopecia [None]
  - Madarosis [None]
  - Rash [None]
  - Acne [None]
  - Depressed mood [None]
  - Hot flush [None]
  - Weight increased [None]
  - Abnormal behaviour [None]
